FAERS Safety Report 16872607 (Version 1)
Quarter: 2019Q4

REPORT INFORMATION
  Report Type: Spontaneous
  Country: US (occurrence: US)
  Receive Date: 20191001
  Receipt Date: 20191001
  Transmission Date: 20200122
  Serious: No
  Sender: FDA-Public Use
  Company Number: US-SPARK THERAPEUTICS, INC.-US-SPK-19-00009

PATIENT
  Age: 32 Year
  Sex: Female
  Weight: 57.5 kg

DRUGS (7)
  1. LUXTURNA [Suspect]
     Active Substance: VORETIGENE NEPARVOVEC-RZYL
     Indication: RETINAL DYSTROPHY
     Dosage: TO THE RIGHT EYE
     Dates: start: 20190219, end: 20190219
  2. LUXTURNA [Suspect]
     Active Substance: VORETIGENE NEPARVOVEC-RZYL
     Dosage: TO THE LEFT EYE
     Route: 031
     Dates: start: 20190521, end: 20190521
  3. PREDNISONE. [Concomitant]
     Active Substance: PREDNISONE
     Indication: PRODUCT USED FOR UNKNOWN INDICATION
     Route: 048
     Dates: start: 20190216, end: 20190305
  4. MAXITROL [Concomitant]
     Active Substance: DEXAMETHASONE\NEOMYCIN SULFATE\POLYMYXIN B SULFATE
     Indication: PRODUCT USED FOR UNKNOWN INDICATION
     Dates: start: 20190220, end: 20190320
  5. LUXTURNA [Suspect]
     Active Substance: VORETIGENE NEPARVOVEC-RZYL
     Indication: RETINAL DYSTROPHY
     Dosage: TO THE RIGHT EYE
     Route: 031
     Dates: start: 20190219, end: 20190219
  6. LUXTURNA [Suspect]
     Active Substance: VORETIGENE NEPARVOVEC-RZYL
     Dosage: TO THE LEFT EYE
     Dates: start: 20190521, end: 20190521
  7. ATROPINE. [Concomitant]
     Active Substance: ATROPINE
     Indication: PRODUCT USED FOR UNKNOWN INDICATION
     Dates: start: 20190220, end: 20190227

REACTIONS (1)
  - Central vision loss [Recovered/Resolved]

NARRATIVE: CASE EVENT DATE: 20190225
